FAERS Safety Report 4444671-2 (Version None)
Quarter: 2004Q3

REPORT INFORMATION
  Report Type: 
  Country: None (occurrence: None)
  Receive Date: 20040907
  Receipt Date: 20040823
  Transmission Date: 20050211
  Serious: Yes (Hospitalization, Other)
  Sender: FDA-Public Use
  Company Number: 2004058919

PATIENT
  Age: 38 Year
  Sex: Male

DRUGS (10)
  1. FLUCONAZOLE [Suspect]
     Indication: CRYPTOCOCCOSIS
     Dates: start: 20040619, end: 20040625
  2. VFEND [Suspect]
     Indication: CRYPTOCOCCOSIS
     Dates: start: 20040626, end: 20040703
  3. BACTRIM [Suspect]
     Indication: ILL-DEFINED DISORDER
     Dosage: 1 IN 1 ORAL
     Route: 048
     Dates: start: 20040622, end: 20040715
  4. VINORELBINE (VINORELBINE) [Suspect]
     Indication: LYMPHOMA
     Dates: start: 20040709
  5. CYCLOPHOSPHAMIDE [Suspect]
     Indication: LYMPHOMA
     Dosage: INTRAVENOUS
     Route: 042
     Dates: start: 20040709
  6. RITUXIMAB (RITUXIMAB) [Suspect]
     Indication: LYMPHOMA
     Dosage: INTRAVENOUS
     Route: 042
     Dates: start: 20040709
  7. DOXORUBICIN (DOXORUBICIN) [Concomitant]
  8. BLEOMYCIN [Concomitant]
  9. VINDESINE (VINDESINE) [Concomitant]
  10. MESNA [Concomitant]

REACTIONS (6)
  - AGRANULOCYTOSIS [None]
  - APLASIA [None]
  - CHOLESTASIS [None]
  - CYTOLYTIC HEPATITIS [None]
  - DRUG INTOLERANCE [None]
  - PLATELET COUNT DECREASED [None]
